FAERS Safety Report 7058745-3 (Version None)
Quarter: 2010Q4

REPORT INFORMATION
  Report Type: 
  Country: None (occurrence: None)
  Receive Date: 20101022
  Receipt Date: 20101013
  Transmission Date: 20110411
  Serious: Yes (Other)
  Sender: FDA-Public Use
  Company Number: GB-WYE-G06569310

PATIENT
  Sex: Male
  Weight: 62.8 kg

DRUGS (7)
  1. REFACTO [Suspect]
     Dosage: 3000IU, FREQUENCY UNKNOWN
     Route: 042
     Dates: start: 20100811
  2. LISINOPRIL [Concomitant]
     Indication: HYPERTENSION
     Route: 048
     Dates: start: 20080101
  3. DAKTARIN [Concomitant]
     Indication: ORAL CANDIDIASIS
     Dosage: 1 APPLICATION FOUR TIMES DAILY AS REQUIRED (2%)
     Route: 048
  4. KALETRA [Concomitant]
     Indication: HIV INFECTION
     Route: 048
     Dates: start: 20060101
  5. KIVEXA [Concomitant]
     Indication: HIV INFECTION
     Route: 048
     Dates: start: 20080101
  6. ADVATE [Concomitant]
     Dosage: UNKNOWN
  7. ETODOLAC [Concomitant]
     Indication: HAEMOPHILIC ARTHROPATHY
     Dosage: 600MG, FREQUENCY UNKNOWN
     Route: 048
     Dates: start: 20090101

REACTIONS (2)
  - DRUG INEFFECTIVE [None]
  - HAEMATOLOGY TEST ABNORMAL [None]
